FAERS Safety Report 9228340 (Version 2)
Quarter: 2013Q4

REPORT INFORMATION
  Report Type: Spontaneous
  Country: US (occurrence: US)
  Receive Date: 20130412
  Receipt Date: 20131008
  Transmission Date: 20140711
  Serious: Yes (Other)
  Sender: FDA-Public Use
  Company Number: US-ROCHE-798768

PATIENT
  Age: 21 Year
  Sex: Male

DRUGS (2)
  1. ACCUTANE [Suspect]
     Indication: PRODUCT USED FOR UNKNOWN INDICATION
     Route: 065
     Dates: start: 199906, end: 2000
  2. ACCUTANE [Suspect]
     Route: 065
     Dates: start: 200808, end: 200902

REACTIONS (3)
  - Crohn^s disease [Unknown]
  - Enterocolonic fistula [Unknown]
  - Depression [Unknown]
